FAERS Safety Report 7042683-6 (Version None)
Quarter: 2010Q4

REPORT INFORMATION
  Report Type: 
  Country: None (occurrence: None)
  Receive Date: 20101013
  Receipt Date: 20100111
  Transmission Date: 20110411
  Serious: No
  Sender: FDA-Public Use
  Company Number: US-ASTRAZENECA-2010SE01118

PATIENT
  Age: 728 Month
  Sex: Female
  Weight: 77.1 kg

DRUGS (1)
  1. SYMBICORT [Suspect]
     Indication: ASTHMA
     Dosage: TOTAL DAILY DOSE 640 MICROGRAM
     Route: 055
     Dates: start: 20091230

REACTIONS (2)
  - BLOOD PRESSURE INCREASED [None]
  - VITREOUS FLOATERS [None]
